FAERS Safety Report 8837724 (Version 1)
Quarter: 2012Q4

REPORT INFORMATION
  Report Type: 
  Country: DE (occurrence: DE)
  Receive Date: 20121012
  Receipt Date: 20121012
  Transmission Date: 20130627
  Serious: Yes (Other)
  Sender: FDA-Public Use
  Company Number: DE-ROCHE-763736

PATIENT
  Sex: Female
  Weight: 67 kg

DRUGS (9)
  1. AVASTIN [Suspect]
     Indication: COLON CANCER METASTATIC
     Route: 042
     Dates: start: 200907, end: 201007
  2. AVASTIN [Suspect]
     Route: 042
     Dates: start: 20101214, end: 20110222
  3. 5-FU [Suspect]
     Indication: COLON CANCER METASTATIC
     Route: 042
     Dates: start: 200907, end: 201007
  4. 5-FU [Suspect]
     Route: 042
     Dates: start: 20101130, end: 20110222
  5. IRINOTECAN [Suspect]
     Indication: COLON CANCER METASTATIC
     Route: 065
     Dates: start: 200907
  6. OXALIPLATIN [Suspect]
     Indication: COLON CANCER METASTATIC
     Route: 042
     Dates: start: 20101130, end: 20110222
  7. FOLINIC ACID [Suspect]
     Indication: COLON CANCER METASTATIC
     Route: 065
     Dates: start: 200907, end: 201007
  8. ONDANSETRON [Concomitant]
     Indication: ANTIEMETIC SUPPORTIVE CARE
     Route: 042
     Dates: start: 200907, end: 20110222
  9. DEXAMETHASONE [Concomitant]
     Indication: ANTIEMETIC SUPPORTIVE CARE
     Route: 042
     Dates: start: 200907, end: 20110222

REACTIONS (3)
  - Pain [Recovered/Resolved]
  - Venous thrombosis [Not Recovered/Not Resolved]
  - Phlebitis [Unknown]
